FAERS Safety Report 4308856-8 (Version None)
Quarter: 2004Q1

REPORT INFORMATION
  Report Type: 
  Country: None (occurrence: None)
  Receive Date: 20040301
  Receipt Date: 20040301
  Transmission Date: 20041129
  Serious: Yes (Hospitalization)
  Sender: FDA-Public Use
  Company Number: None

PATIENT
  Age: 58 Year
  Sex: Male
  Weight: 32.4322 kg

DRUGS (4)
  1. CISPLATIN [Suspect]
     Indication: OESOPHAGEAL CANCER METASTATIC
     Dosage: 30 MG/M2 DAYS 1 AND 8, IV
     Route: 042
     Dates: start: 20040206
  2. CISPLATIN [Suspect]
     Indication: OESOPHAGEAL CANCER METASTATIC
     Dosage: 30 MG/M2 DAYS 1 AND 8, IV
     Route: 042
     Dates: start: 20040213
  3. IRINOTECAN [Suspect]
     Indication: OESOPHAGEAL CANCER METASTATIC
     Dosage: 65 MG/M2 , DAYS 1 AND 8 IV
     Route: 042
     Dates: start: 20040206
  4. IRINOTECAN [Suspect]
     Indication: OESOPHAGEAL CANCER METASTATIC
     Dosage: 65 MG/M2 , DAYS 1 AND 8 IV
     Route: 042
     Dates: start: 20040213

REACTIONS (3)
  - DEHYDRATION [None]
  - FEBRILE NEUTROPENIA [None]
  - PYREXIA [None]
